FAERS Safety Report 8320576-1 (Version None)
Quarter: 2012Q2

REPORT INFORMATION
  Report Type: 
  Country: None (occurrence: None)
  Receive Date: 20120430
  Receipt Date: 20120424
  Transmission Date: 20120825
  Serious: Yes (Hospitalization, Other)
  Sender: FDA-Public Use
  Company Number: US-PFIZER INC-2012101961

PATIENT
  Sex: Female
  Weight: 38.095 kg

DRUGS (2)
  1. DILANTIN [Suspect]
     Indication: CONVULSION
     Dosage: 150 MG, 2X/DAY
     Route: 048
     Dates: end: 20120101
  2. ATIVAN [Concomitant]
     Indication: AGITATION
     Dosage: 2 MG, 5X/DAY
     Route: 048

REACTIONS (2)
  - TRICHOMONIASIS [None]
  - PNEUMONIA [None]
